FAERS Safety Report 7258736-3 (Version None)
Quarter: 2011Q1

REPORT INFORMATION
  Report Type: 
  Country: None (occurrence: None)
  Receive Date: 20110129
  Receipt Date: 20100819
  Transmission Date: 20110831
  Serious: No
  Sender: FDA-Public Use
  Company Number: US-ABBOTT-10P-163-0648142-00

PATIENT
  Sex: Male

DRUGS (9)
  1. ATIVAN [Concomitant]
     Indication: ANXIETY
  2. NEXIUM [Concomitant]
     Indication: CROHN'S DISEASE
  3. IMITREX [Concomitant]
     Indication: HEADACHE
     Route: 045
  4. HUMIRA [Suspect]
     Route: 058
     Dates: start: 20100501
  5. VERAPAMIL [Concomitant]
     Indication: CLUSTER HEADACHE
     Dosage: BID
  6. VERAPAMIL [Concomitant]
     Indication: PALPITATIONS
  7. AMBIEN [Concomitant]
     Indication: INSOMNIA
     Dosage: 2 AT BEDTIME
  8. IMURAN [Concomitant]
     Indication: PRODUCT USED FOR UNKNOWN INDICATION
  9. HUMIRA [Suspect]
     Indication: CROHN'S DISEASE
     Dosage: FOUR 40 MG PRE-FILLED SYRINGE
     Dates: start: 20100528

REACTIONS (6)
  - CHILLS [None]
  - HEADACHE [None]
  - INFLUENZA LIKE ILLNESS [None]
  - DIZZINESS [None]
  - NAUSEA [None]
  - CROHN'S DISEASE [None]
